FAERS Safety Report 5408309-X (Version None)
Quarter: 2007Q3

REPORT INFORMATION
  Report Type: 
  Country: None (occurrence: None)
  Receive Date: 20070803
  Receipt Date: 20070726
  Transmission Date: 20080115
  Serious: Yes (Death, Life-Threatening)
  Sender: FDA-Public Use
  Company Number: POMP-11088

PATIENT
  Age: 6 Month
  Sex: Female
  Weight: 6 kg

DRUGS (5)
  1. MYOZYME [Suspect]
     Indication: GLYCOGEN STORAGE DISEASE TYPE II
     Dosage: 20 MG/KG Q2WKS IV
     Route: 042
     Dates: start: 20070607, end: 20070607
  2. SALBUTAMOL [Concomitant]
  3. HYDROCORTISONE [Concomitant]
  4. ANTIBIOTICS [Concomitant]
  5. FUROSEMIDE [Concomitant]

REACTIONS (3)
  - BRONCHOSPASM [None]
  - VENTRICULAR FIBRILLATION [None]
  - VENTRICULAR TACHYCARDIA [None]
